FAERS Safety Report 24933836 (Version 1)
Quarter: 2025Q1

REPORT INFORMATION
  Report Type: Report from Study
  Country: TH (occurrence: TH)
  Receive Date: 20250206
  Receipt Date: 20250206
  Transmission Date: 20250408
  Serious: Yes (Death, Hospitalization, Other)
  Sender: EXELIXIS
  Company Number: TH-IPSEN Group, Research and Development-2024-04159

PATIENT
  Age: 37 Year
  Sex: Female

DRUGS (2)
  1. CABOMETYX [Suspect]
     Active Substance: CABOZANTINIB S-MALATE
     Indication: Poorly differentiated thyroid carcinoma
     Dosage: 60 MG, QD
     Route: 048
     Dates: start: 20230928, end: 20240310
  2. CABOMETYX [Suspect]
     Active Substance: CABOZANTINIB S-MALATE
     Route: 065
     Dates: start: 20240314, end: 202405

REACTIONS (4)
  - Death [Fatal]
  - Dyspnoea [Unknown]
  - Malignant neoplasm progression [Unknown]
  - Wrong technique in product usage process [Unknown]

NARRATIVE: CASE EVENT DATE: 20240501
